FAERS Safety Report 24889890 (Version 1)
Quarter: 2025Q1

REPORT INFORMATION
  Report Type: Spontaneous
  Country: FR (occurrence: FR)
  Receive Date: 20250127
  Receipt Date: 20250127
  Transmission Date: 20250409
  Serious: Yes (Other)
  Sender: MYLAN
  Company Number: None

PATIENT
  Age: 65 Year
  Sex: Female

DRUGS (1)
  1. TRAMADOL [Suspect]
     Active Substance: TRAMADOL
     Indication: Product used for unknown indication
     Dosage: 50 MILLIGRAM, BID (50 MG EXTENDED RELEASE MORNING AND EVENING)
     Route: 048
     Dates: start: 2018

REACTIONS (1)
  - Drug use disorder [Not Recovered/Not Resolved]
